FAERS Safety Report 21529013 (Version 5)
Quarter: 2023Q1

REPORT INFORMATION
  Report Type: Report from Study
  Country: FI (occurrence: None)
  Receive Date: 20221031
  Receipt Date: 20230125
  Transmission Date: 20230417
  Serious: Yes (Death, Hospitalization)
  Sender: FDA-Public Use
  Company Number: FI-ROCHE-3209087

PATIENT
  Age: 84 Year
  Sex: Male
  Weight: 70.7 kg

DRUGS (88)
  1. POLATUZUMAB VEDOTIN [Suspect]
     Active Substance: POLATUZUMAB VEDOTIN
     Indication: Diffuse large B-cell lymphoma
     Dosage: ON 19/JUL/2022, HE RECEIVED THE MOST RECENT DOSE OF POLATUZUMAB VEDOTIN (131 MG) PRIOR TO AE AND SAE
     Route: 042
     Dates: start: 20220307
  2. RITUXIMAB [Suspect]
     Active Substance: RITUXIMAB
     Indication: Diffuse large B-cell lymphoma
     Dosage: ON 19/JUL/2022, HE RECEIVED THE MOST RECENT DOSE OF RITUXIMAB (694 MG) PRIOR TO AE AND SAE ONSET
     Route: 041
     Dates: start: 20220307
  3. GEMCITABINE [Suspect]
     Active Substance: GEMCITABINE
     Indication: Diffuse large B-cell lymphoma
     Dosage: ON 20/JUL/2022, HE RECEIVED THE MOST RECENT DOSE OF GEMCITABINE (1850 MG) PRIOR TO AE AND SAE ONSET
     Route: 042
     Dates: start: 20220317
  4. OXALIPLATIN [Suspect]
     Active Substance: OXALIPLATIN
     Indication: Diffuse large B-cell lymphoma
     Dosage: ON 20/JUL/2022, HE RECEIVED THE MOST RECENT DOSE OF OXALIPLATIN (185 MG) PRIOR TO AE AND SAE ONSET
     Route: 042
     Dates: start: 20220317
  5. BISOPROLOL [Concomitant]
     Active Substance: BISOPROLOL
     Indication: Atrial fibrillation
     Route: 048
     Dates: start: 20171128
  6. PANTOPRAZOLE SODIUM [Concomitant]
     Active Substance: PANTOPRAZOLE SODIUM
     Indication: Dyspepsia
     Route: 048
     Dates: start: 20211126
  7. ZOPICLONE [Concomitant]
     Active Substance: ZOPICLONE
     Indication: Insomnia
     Route: 048
     Dates: start: 20211126
  8. INNOHEP [Concomitant]
     Active Substance: TINZAPARIN SODIUM
     Indication: Atrial fibrillation
     Route: 058
     Dates: start: 20171128, end: 20220329
  9. INNOHEP [Concomitant]
     Active Substance: TINZAPARIN SODIUM
     Route: 058
     Dates: start: 20220414, end: 20220519
  10. INNOHEP [Concomitant]
     Active Substance: TINZAPARIN SODIUM
     Route: 058
     Dates: start: 20220524, end: 20220607
  11. INNOHEP [Concomitant]
     Active Substance: TINZAPARIN SODIUM
     Route: 058
     Dates: start: 20220615, end: 20220726
  12. INNOHEP [Concomitant]
     Active Substance: TINZAPARIN SODIUM
     Route: 058
     Dates: start: 20220804
  13. ALLOPURINOL [Concomitant]
     Active Substance: ALLOPURINOL
     Route: 048
     Dates: start: 20220307, end: 20220307
  14. DEXAMETHASONE [Concomitant]
     Active Substance: DEXAMETHASONE
     Route: 048
     Dates: start: 20220307, end: 20220307
  15. DEXAMETHASONE [Concomitant]
     Active Substance: DEXAMETHASONE
     Route: 048
     Dates: start: 20220317, end: 20220317
  16. DEXAMETHASONE [Concomitant]
     Active Substance: DEXAMETHASONE
     Route: 048
     Dates: start: 20220318, end: 20220319
  17. DEXAMETHASONE [Concomitant]
     Active Substance: DEXAMETHASONE
     Route: 048
     Dates: start: 20220421, end: 20220421
  18. DEXAMETHASONE [Concomitant]
     Active Substance: DEXAMETHASONE
     Route: 048
     Dates: start: 20220422, end: 20220423
  19. DEXAMETHASONE [Concomitant]
     Active Substance: DEXAMETHASONE
     Route: 048
     Dates: start: 20220512, end: 20220512
  20. DEXAMETHASONE [Concomitant]
     Active Substance: DEXAMETHASONE
     Route: 048
     Dates: start: 20220513, end: 20220514
  21. DEXAMETHASONE [Concomitant]
     Active Substance: DEXAMETHASONE
     Route: 048
     Dates: start: 20220602, end: 20220602
  22. DEXAMETHASONE [Concomitant]
     Active Substance: DEXAMETHASONE
     Route: 048
     Dates: start: 20220603, end: 20220604
  23. DEXAMETHASONE [Concomitant]
     Active Substance: DEXAMETHASONE
     Route: 048
     Dates: start: 20220720, end: 20220720
  24. DEXAMETHASONE [Concomitant]
     Active Substance: DEXAMETHASONE
     Route: 048
     Dates: start: 20220721, end: 20220722
  25. PREDNISOLONE [Concomitant]
     Active Substance: PREDNISOLONE
     Route: 048
     Dates: start: 20220302, end: 20220307
  26. PREDNISOLONE [Concomitant]
     Active Substance: PREDNISOLONE
     Route: 048
     Dates: start: 20220827, end: 20220828
  27. PREDNISOLONE [Concomitant]
     Active Substance: PREDNISOLONE
     Route: 048
     Dates: start: 20220829, end: 20220901
  28. PREDNISOLONE [Concomitant]
     Active Substance: PREDNISOLONE
     Route: 048
     Dates: start: 20220902, end: 20220906
  29. PREDNISOLONE [Concomitant]
     Active Substance: PREDNISOLONE
     Route: 048
     Dates: start: 20220907, end: 20220920
  30. PREDNISOLONE [Concomitant]
     Active Substance: PREDNISOLONE
     Route: 048
     Dates: start: 20220921, end: 20220926
  31. CETIRIZINE HYDROCHLORIDE [Concomitant]
     Active Substance: CETIRIZINE HYDROCHLORIDE
     Route: 048
     Dates: start: 20220307, end: 20220307
  32. CETIRIZINE HYDROCHLORIDE [Concomitant]
     Active Substance: CETIRIZINE HYDROCHLORIDE
     Route: 048
     Dates: start: 20220420, end: 20220420
  33. CETIRIZINE HYDROCHLORIDE [Concomitant]
     Active Substance: CETIRIZINE HYDROCHLORIDE
     Route: 048
     Dates: start: 20220511, end: 20220511
  34. CETIRIZINE HYDROCHLORIDE [Concomitant]
     Active Substance: CETIRIZINE HYDROCHLORIDE
     Route: 048
     Dates: start: 20220601, end: 20220601
  35. CETIRIZINE HYDROCHLORIDE [Concomitant]
     Active Substance: CETIRIZINE HYDROCHLORIDE
     Route: 048
     Dates: start: 20220622, end: 20220622
  36. CETIRIZINE HYDROCHLORIDE [Concomitant]
     Active Substance: CETIRIZINE HYDROCHLORIDE
     Route: 048
     Dates: start: 20220719, end: 20220719
  37. PANADOL FORTE [Concomitant]
     Indication: Pyrexia
     Route: 048
     Dates: start: 20220307, end: 20220307
  38. PANADOL FORTE [Concomitant]
     Route: 048
     Dates: start: 20220308, end: 20220308
  39. GRANISETRON [Concomitant]
     Active Substance: GRANISETRON
     Indication: Nausea
     Route: 048
     Dates: start: 20220317, end: 20220317
  40. GRANISETRON [Concomitant]
     Active Substance: GRANISETRON
     Route: 048
     Dates: start: 20220421, end: 20220421
  41. GRANISETRON [Concomitant]
     Active Substance: GRANISETRON
     Route: 048
     Dates: start: 20220512, end: 20220512
  42. GRANISETRON [Concomitant]
     Active Substance: GRANISETRON
     Route: 048
     Dates: start: 20220325
  43. GRANISETRON [Concomitant]
     Active Substance: GRANISETRON
     Route: 048
     Dates: start: 20220602, end: 20220602
  44. GRANISETRON [Concomitant]
     Active Substance: GRANISETRON
     Route: 048
     Dates: start: 20220720, end: 20220720
  45. ALLOPURINOL [Concomitant]
     Active Substance: ALLOPURINOL
     Route: 048
     Dates: start: 20220317, end: 20220417
  46. ZIEXTENZO [Concomitant]
     Active Substance: PEGFILGRASTIM-BMEZ
     Route: 058
     Dates: start: 20220318, end: 20220318
  47. ZIEXTENZO [Concomitant]
     Active Substance: PEGFILGRASTIM-BMEZ
     Route: 058
     Dates: start: 20220422, end: 20220422
  48. ZIEXTENZO [Concomitant]
     Active Substance: PEGFILGRASTIM-BMEZ
     Route: 058
     Dates: start: 20220513, end: 20220513
  49. ZIEXTENZO [Concomitant]
     Active Substance: PEGFILGRASTIM-BMEZ
     Route: 058
     Dates: start: 20220603, end: 20220603
  50. ZIEXTENZO [Concomitant]
     Active Substance: PEGFILGRASTIM-BMEZ
     Route: 058
     Dates: start: 20220721, end: 20220721
  51. IMOCUR [Concomitant]
     Indication: Diarrhoea
     Route: 048
     Dates: start: 20220321, end: 20220325
  52. PANADOL [Concomitant]
     Active Substance: ACETAMINOPHEN
     Indication: Pyrexia
     Route: 048
     Dates: start: 20220326
  53. PANADOL [Concomitant]
     Active Substance: ACETAMINOPHEN
     Indication: Back pain
     Route: 048
     Dates: start: 20220511, end: 20220511
  54. PANADOL [Concomitant]
     Active Substance: ACETAMINOPHEN
     Route: 048
     Dates: start: 20220601, end: 20220601
  55. PANADOL [Concomitant]
     Active Substance: ACETAMINOPHEN
     Route: 048
     Dates: start: 20220622, end: 20220622
  56. PANADOL [Concomitant]
     Active Substance: ACETAMINOPHEN
     Route: 048
     Dates: start: 20220719, end: 20220719
  57. CEFUROXIM MIP PHARMA [Concomitant]
     Indication: Pneumonia bacterial
     Route: 042
     Dates: start: 20220407, end: 20220411
  58. MAGNESIUM HYDROXIDE [Concomitant]
     Active Substance: MAGNESIUM HYDROXIDE
     Route: 048
     Dates: start: 20220407, end: 20220415
  59. OXYCODONE HYDROCHLORIDE [Concomitant]
     Active Substance: OXYCODONE HYDROCHLORIDE
     Route: 048
     Dates: start: 20220406
  60. OXYCODONE HYDROCHLORIDE [Concomitant]
     Active Substance: OXYCODONE HYDROCHLORIDE
     Route: 048
     Dates: start: 20220624
  61. ABSTRAL [Concomitant]
     Active Substance: FENTANYL CITRATE
     Indication: Abdominal pain
     Route: 060
     Dates: start: 20220406, end: 20220420
  62. OXYCONTIN [Concomitant]
     Active Substance: OXYCODONE HYDROCHLORIDE
     Indication: Abdominal pain
     Route: 048
     Dates: start: 20220408, end: 20220414
  63. OXYCONTIN [Concomitant]
     Active Substance: OXYCODONE HYDROCHLORIDE
     Route: 048
     Dates: start: 20220420, end: 20220601
  64. OXYCONTIN [Concomitant]
     Active Substance: OXYCODONE HYDROCHLORIDE
     Route: 048
     Dates: start: 20220624
  65. ERDOSTEINE [Concomitant]
     Active Substance: ERDOSTEINE
     Indication: Cough
     Route: 048
     Dates: start: 20220406, end: 20220414
  66. ERDOSTEINE [Concomitant]
     Active Substance: ERDOSTEINE
     Route: 048
     Dates: start: 20220601, end: 20220610
  67. HUMAN RED BLOOD CELL [Concomitant]
     Active Substance: HUMAN RED BLOOD CELL
     Indication: Anaemia
     Dosage: 2 OTHER
     Route: 042
     Dates: start: 20220407, end: 20220407
  68. HUMAN RED BLOOD CELL [Concomitant]
     Active Substance: HUMAN RED BLOOD CELL
     Dosage: 1 OTHER
     Route: 042
     Dates: start: 20220731, end: 20220731
  69. HUMAN RED BLOOD CELL [Concomitant]
     Active Substance: HUMAN RED BLOOD CELL
     Dosage: 2 OTHER
     Route: 042
     Dates: start: 20220822, end: 20220822
  70. HUMAN RED BLOOD CELL [Concomitant]
     Active Substance: HUMAN RED BLOOD CELL
     Dates: start: 20220830, end: 20220830
  71. ACETAMINOPHEN [Concomitant]
     Active Substance: ACETAMINOPHEN
     Route: 048
     Dates: start: 20220420, end: 20220420
  72. CEFTRIAXONE [Concomitant]
     Active Substance: CEFTRIAXONE
     Route: 042
     Dates: start: 20220411, end: 20220414
  73. CEFTRIAXONE [Concomitant]
     Active Substance: CEFTRIAXONE
     Route: 042
     Dates: start: 20220823, end: 20220829
  74. AMOXICILLIN\CLAVULANATE POTASSIUM [Concomitant]
     Active Substance: AMOXICILLIN\CLAVULANATE POTASSIUM
     Indication: Pneumonia bacterial
     Route: 048
     Dates: start: 20220414, end: 20220418
  75. ACETAMINOPHEN\CODEINE PHOSPHATE [Concomitant]
     Active Substance: ACETAMINOPHEN\CODEINE PHOSPHATE
     Indication: Abdominal pain
     Route: 048
     Dates: start: 20220415, end: 20220419
  76. ACETAMINOPHEN\CODEINE PHOSPHATE [Concomitant]
     Active Substance: ACETAMINOPHEN\CODEINE PHOSPHATE
     Route: 048
     Dates: start: 20220516
  77. PRIMPERAN [Concomitant]
     Active Substance: METOCLOPRAMIDE HYDROCHLORIDE
     Indication: Nausea
     Route: 048
     Dates: start: 20220325
  78. MIRTAZAPINE [Concomitant]
     Active Substance: MIRTAZAPINE
     Indication: Insomnia
     Route: 048
     Dates: start: 20220601
  79. CEFUROXIME [Concomitant]
     Active Substance: CEFUROXIME
     Indication: Pneumonia
     Route: 042
     Dates: start: 20220728, end: 20220731
  80. CEFUROXIME [Concomitant]
     Active Substance: CEFUROXIME
     Route: 042
     Dates: start: 20220816, end: 20220823
  81. AMOXICILLIN [Concomitant]
     Active Substance: AMOXICILLIN
     Indication: Pneumonia
     Route: 048
     Dates: start: 20220801, end: 20220807
  82. POLYETHYLENE GLYCOL 4000 [Concomitant]
     Active Substance: POLYETHYLENE GLYCOL 4000
     Indication: Constipation
     Route: 048
     Dates: start: 20220824
  83. LACTULOSE [Concomitant]
     Active Substance: LACTULOSE
     Indication: Constipation
     Route: 048
     Dates: start: 20220824
  84. COMIRNATY [Concomitant]
     Active Substance: TOZINAMERAN
     Route: 030
     Dates: start: 20210201, end: 20210201
  85. COMIRNATY [Concomitant]
     Active Substance: TOZINAMERAN
     Route: 030
     Dates: start: 20210426, end: 20210426
  86. COMIRNATY [Concomitant]
     Active Substance: TOZINAMERAN
     Route: 030
     Dates: start: 20211130, end: 20211130
  87. POTASSIUM CHLORIDE [Concomitant]
     Active Substance: POTASSIUM CHLORIDE
     Route: 048
     Dates: start: 20220824, end: 20220927
  88. SULFAMETHOXAZOLE\TRIMETHOPRIM [Concomitant]
     Active Substance: SULFAMETHOXAZOLE\TRIMETHOPRIM
     Route: 050
     Dates: start: 20220830

REACTIONS (2)
  - COVID-19 pneumonia [Fatal]
  - Pneumonitis [Recovered/Resolved]

NARRATIVE: CASE EVENT DATE: 20220816
